FAERS Safety Report 6426496-1 (Version None)
Quarter: 2009Q4

REPORT INFORMATION
  Report Type: 
  Country: None (occurrence: None)
  Receive Date: 20091104
  Receipt Date: 20091027
  Transmission Date: 20100525
  Serious: Yes (Life-Threatening)
  Sender: FDA-Public Use
  Company Number: JP-ASTRAZENECA-2009SE23912

PATIENT
  Sex: Female
  Weight: 57 kg

DRUGS (12)
  1. BLOPRESS [Suspect]
     Indication: ESSENTIAL HYPERTENSION
     Route: 048
     Dates: end: 20091006
  2. ACTOS [Concomitant]
     Route: 048
  3. GASTER D [Concomitant]
     Route: 048
  4. ZYLORIC [Concomitant]
     Route: 048
  5. FERROMIA [Concomitant]
     Route: 048
  6. INNOLET 30R [Concomitant]
     Dosage: 18 UT (14-4 UT,2 IN 1 D)
     Route: 058
  7. RISPERDAL [Concomitant]
     Route: 048
  8. TASMOLIN [Concomitant]
     Route: 048
  9. AMOBAN [Concomitant]
     Route: 048
  10. PANTOSIN [Concomitant]
     Route: 048
  11. MAGNESIUM OXIDE [Concomitant]
     Route: 048
  12. LASIX [Concomitant]
     Dosage: 80 MG (40-20-20 MG,3 IN 1 D)
     Route: 048

REACTIONS (3)
  - ABDOMINAL PAIN UPPER [None]
  - BRADYCARDIA [None]
  - HYPOTENSION [None]
